FAERS Safety Report 5766987-X (Version None)
Quarter: 2008Q2

REPORT INFORMATION
  Report Type: 
  Country: None (occurrence: None)
  Receive Date: 20080612
  Receipt Date: 20080604
  Transmission Date: 20081010
  Serious: Yes (Other)
  Sender: FDA-Public Use
  Company Number: BE-JNJFOC-20080601230

PATIENT
  Age: 57 Year
  Sex: Female

DRUGS (5)
  1. DURAGESIC-100 [Suspect]
     Indication: PALLIATIVE CARE
     Route: 062
  2. DEPAKENE [Concomitant]
     Route: 065
  3. KEPPRA [Concomitant]
     Route: 065
  4. DIPHANTOINE [Concomitant]
     Route: 065
  5. MORPHINE [Concomitant]

REACTIONS (1)
  - CLONUS [None]
